FAERS Safety Report 12959569 (Version 1)
Quarter: 2016Q4

REPORT INFORMATION
  Report Type: Spontaneous
  Country: CH (occurrence: CH)
  Receive Date: 20161121
  Receipt Date: 20161121
  Transmission Date: 20170207
  Serious: Yes (Other)
  Sender: FDA-Public Use
  Company Number: CH-AMGEN-CHESP2016162406

PATIENT
  Age: 50 Year
  Sex: Female
  Weight: 71.8 kg

DRUGS (3)
  1. DAFALGAN [Concomitant]
     Active Substance: ACETAMINOPHEN
     Dosage: 1 G, AS NECESSARY
  2. VITAMIN D3 STREULI [Concomitant]
     Dosage: 2 ML, QWK
  3. PROLIA [Suspect]
     Active Substance: DENOSUMAB
     Indication: OSTEOPOROSIS
     Dosage: 60 MG, Q6MO
     Route: 058
     Dates: start: 201305, end: 201505

REACTIONS (2)
  - Bone density decreased [Not Recovered/Not Resolved]
  - Rebound effect [Not Recovered/Not Resolved]
